FAERS Safety Report 23314015 (Version 3)
Quarter: 2024Q1

REPORT INFORMATION
  Report Type: Spontaneous
  Country: US (occurrence: US)
  Receive Date: 20231219
  Receipt Date: 20240329
  Transmission Date: 20240410
  Serious: Yes (Death, Hospitalization, Other)
  Sender: FDA-Public Use
  Company Number: US-JNJFOC-20231228943

PATIENT

DRUGS (1)
  1. TECVAYLI [Suspect]
     Active Substance: TECLISTAMAB-CQYV
     Indication: Plasma cell myeloma refractory
     Dosage: STEP-UP DOSING
     Route: 065

REACTIONS (14)
  - COVID-19 pneumonia [Fatal]
  - Systemic candida [Unknown]
  - Oesophageal candidiasis [Unknown]
  - Immune effector cell-associated neurotoxicity syndrome [Unknown]
  - Cytokine release syndrome [Unknown]
  - Pneumonia [Unknown]
  - Bacteraemia [Unknown]
  - Viral infection [Unknown]
  - Bacterial infection [Unknown]
  - Upper respiratory tract infection [Unknown]
  - Viraemia [Unknown]
  - Urinary tract infection [Unknown]
  - Pneumocystis jirovecii pneumonia [Unknown]
  - Lower respiratory tract infection [Unknown]
